FAERS Safety Report 14605280 (Version 1)
Quarter: 2018Q1

REPORT INFORMATION
  Report Type: Spontaneous
  Country: US (occurrence: US)
  Receive Date: 20180306
  Receipt Date: 20180306
  Transmission Date: 20180509
  Serious: No
  Sender: FDA-Public Use
  Company Number: US-TARO-2017TAR00405

PATIENT
  Age: 73 Year
  Sex: Female
  Weight: 63.49 kg

DRUGS (4)
  1. UNSPECIFIED EYE DROPS [Concomitant]
     Active Substance: UNSPECIFIED INGREDIENT
  2. TERCONAZOLE VAGINAL CREAM 0.4% [Suspect]
     Active Substance: TERCONAZOLE
     Indication: CANDIDA INFECTION
     Dosage: 1 DOSAGE UNITS, 1X/DAY ^ONE APPLICATORFUL^
     Route: 067
     Dates: start: 20170518, end: 20170526
  3. TERCONAZOLE VAGINAL CREAM 0.4% [Suspect]
     Active Substance: TERCONAZOLE
     Indication: VAGINAL INFECTION
  4. UNSPECIFIED MULTIVITAMIN [Concomitant]

REACTIONS (5)
  - Application site haemorrhage [Recovered/Resolved]
  - Application site discomfort [Recovered/Resolved]
  - Lip swelling [Not Recovered/Not Resolved]
  - Pain of skin [Not Recovered/Not Resolved]
  - Product quality issue [Not Recovered/Not Resolved]

NARRATIVE: CASE EVENT DATE: 201705
